FAERS Safety Report 21846659 (Version 1)
Quarter: 2023Q1

REPORT INFORMATION
  Report Type: Spontaneous
  Country: US (occurrence: US)
  Receive Date: 20230111
  Receipt Date: 20230111
  Transmission Date: 20230418
  Serious: No
  Sender: FDA-Public Use
  Company Number: US-JNJFOC-20221259864

PATIENT
  Age: 46 Year
  Sex: Female

DRUGS (11)
  1. TYLENOL [Suspect]
     Active Substance: ACETAMINOPHEN
     Indication: Pain
     Route: 065
     Dates: start: 2022
  2. LECITHIN\POLOXAMER 407 [Concomitant]
     Active Substance: LECITHIN\POLOXAMER 407
     Indication: Infusion site pain
     Route: 065
     Dates: start: 2022
  3. REMODULIN [Concomitant]
     Active Substance: TREPROSTINIL
     Indication: Pulmonary arterial hypertension
     Route: 058
     Dates: start: 20221102
  4. REMODULIN [Concomitant]
     Active Substance: TREPROSTINIL
     Dosage: 0.012 UG/KG (PRE-FILLED WITH 3ML PER CASSETTE AT PUMP RATE OF 34 MCL/HOUR), CONTINUING
     Route: 058
     Dates: start: 202211
  5. REMODULIN [Concomitant]
     Active Substance: TREPROSTINIL
     Dosage: 0.014 UG/KG (PRE-FILLED WITH 3ML PER CASSETTE AT PUMP RATE 34 MCL/HOUR), CONTINUING,
     Route: 058
     Dates: start: 202211
  6. REMODULIN [Concomitant]
     Active Substance: TREPROSTINIL
     Dosage: 0.016 UG/KG (PHARMACY PRE-FILLED WITH 3ML PER CASSETTE AT PUMP RATE OF 46 MCL/HOUR), CONTINUING,
     Route: 058
     Dates: start: 202211
  7. REMODULIN [Concomitant]
     Active Substance: TREPROSTINIL
     Dosage: 0.018 UG/KG (PHARMACY PRE-FILLED WITH 3 ML PER CASSETTE AT A PUMP RATE OF 52 MCL PER HOUR), CONTINUI
     Route: 058
     Dates: start: 2022
  8. REMODULIN [Concomitant]
     Active Substance: TREPROSTINIL
     Dosage: 0.016 UG/KG, CONTINUING (SELF PRE-FILLED WITH 3ML PER CASSETTE AT PUMP RATE OF 46 MCL/HOUR), CONTINU
     Route: 058
     Dates: start: 2022
  9. ADEMPAS [Concomitant]
     Active Substance: RIOCIGUAT
     Indication: Product used for unknown indication
     Route: 065
  10. ELIQUIS [Concomitant]
     Active Substance: APIXABAN
     Indication: Product used for unknown indication
     Route: 065
  11. SILDENAFIL CITRATE [Concomitant]
     Active Substance: SILDENAFIL CITRATE
     Indication: Product used for unknown indication
     Route: 065

REACTIONS (1)
  - Product use in unapproved indication [Unknown]

NARRATIVE: CASE EVENT DATE: 20220101
